FAERS Safety Report 21146738 (Version 1)
Quarter: 2022Q3

REPORT INFORMATION
  Report Type: Spontaneous
  Country: US (occurrence: None)
  Receive Date: 20220728
  Receipt Date: 20220728
  Transmission Date: 20221026
  Serious: No
  Sender: FDA-Public Use
  Company Number: None

PATIENT
  Age: 48 Year
  Sex: Female
  Weight: 86.18 kg

DRUGS (1)
  1. OTREXUP [Suspect]
     Active Substance: METHOTREXATE
     Indication: Dermatomyositis
     Dosage: OTHER QUANTITY : 25MG (0.4ML) ;?FREQUENCY : AS DIRECTED;?
     Route: 058
     Dates: start: 202104

REACTIONS (1)
  - COVID-19 [None]
